FAERS Safety Report 21927857 (Version 2)
Quarter: 2023Q1

REPORT INFORMATION
  Report Type: Spontaneous
  Country: SE (occurrence: SE)
  Receive Date: 20230130
  Receipt Date: 20230315
  Transmission Date: 20230418
  Serious: Yes (Hospitalization, Other)
  Sender: FDA-Public Use
  Company Number: SE-Medice Arzneimittel-ATTSPO-2022-095

PATIENT
  Sex: Female

DRUGS (6)
  1. LYRICA [Suspect]
     Active Substance: PREGABALIN
     Indication: Anxiety
     Dosage: 450 MILLIGRAM, QD (1X 3 DAILY)
     Route: 048
     Dates: start: 2012
  2. CLOMETHIAZOLE [Suspect]
     Active Substance: CLOMETHIAZOLE
     Indication: Sleep disorder
     Dosage: 600 MILLIGRAM, QD (1X 2 DAILY)
     Route: 048
     Dates: start: 2021
  3. DEXTROAMPHETAMINE SULFATE [Suspect]
     Active Substance: DEXTROAMPHETAMINE SULFATE
     Indication: Attention deficit hyperactivity disorder
     Dosage: 80 MILLIGRAM, QD (4X20 MG DAILY)
     Route: 048
     Dates: start: 2017
  4. DEXTROAMPHETAMINE SULFATE [Suspect]
     Active Substance: DEXTROAMPHETAMINE SULFATE
     Indication: Attention deficit hyperactivity disorder
     Dosage: 80 MILLIGRAM, QD (80 MG DAILY)
     Route: 048
  5. CAREDIN [Concomitant]
     Indication: Dust allergy
     Dosage: 2.5 MILLIGRAM(DAILY DOSE 1X 2 WHEN NEEDED)
     Route: 048
     Dates: start: 2012
  6. Temesta [Concomitant]
     Indication: Anxiety
     Dosage: 1 MILLIGRAM (DAILY DOSE 1X 2 WHEN NEEDED)
     Route: 048
     Dates: start: 2012

REACTIONS (5)
  - Horner^s syndrome [Unknown]
  - Facial paresis [Unknown]
  - Peripheral swelling [Recovering/Resolving]
  - Off label use [Not Recovered/Not Resolved]
  - Overdose [Not Recovered/Not Resolved]

NARRATIVE: CASE EVENT DATE: 20170101
